FAERS Safety Report 4264129-3 (Version None)
Quarter: 2004Q1

REPORT INFORMATION
  Report Type: 
  Country: None (occurrence: None)
  Receive Date: 20040102
  Receipt Date: 20031215
  Transmission Date: 20041129
  Serious: Yes (Death, Life-Threatening, Hospitalization)
  Sender: FDA-Public Use
  Company Number: EWC021133033

PATIENT
  Age: 73 Year
  Sex: Female
  Weight: 65 kg

DRUGS (12)
  1. GEMCITABINE HYDROCHLORIDE (GEMCITABINE) [Suspect]
     Indication: BLADDER CANCER
     Dosage: 1747.8 MG           IV
     Route: 042
     Dates: start: 20021101
  2. CISPLATIN [Suspect]
     Indication: BLADDER CANCER
     Dosage: 119.97 MG
     Route: 042
     Dates: start: 20021101
  3. PACLITAXEL [Suspect]
     Indication: BLADDER CANCER
     Dates: start: 20021101
  4. OPTINEM (MEROPENEM) [Concomitant]
  5. VANCOMYCIN [Concomitant]
  6. AMBONEURAL (SELEGILINE HYDROCHLORIDE) [Concomitant]
  7. ELITEN (FOSINOPRIL SODIUM) [Concomitant]
  8. NEUPOGEN [Concomitant]
  9. RINGERS INJECTION IN PLASTIC CONTAINER [Concomitant]
  10. AMPHOTERICIN B [Concomitant]
  11. GRANOCYTE (AMPHOTERICIN B) [Concomitant]
  12. MOTRIN [Concomitant]

REACTIONS (3)
  - CYSTITIS [None]
  - DIARRHOEA [None]
  - NEUTROPENIA [None]
